FAERS Safety Report 18411928 (Version 1)
Quarter: 2020Q4

REPORT INFORMATION
  Report Type: Spontaneous
  Country: CN (occurrence: CN)
  Receive Date: 20201021
  Receipt Date: 20201021
  Transmission Date: 20210114
  Serious: Yes (Other)
  Sender: FDA-Public Use
  Company Number: CN-009507513-2010CHN006208

PATIENT
  Age: 46 Year
  Sex: Female

DRUGS (2)
  1. ABRAXANE [Concomitant]
     Active Substance: PACLITAXEL
     Indication: CERVIX CANCER METASTATIC
     Dosage: UNK, EVERY 3 WEEKS FOR LESS THAN 2 MONTHS
     Dates: start: 20200108, end: 2020
  2. PEMBROLIZUMAB. [Suspect]
     Active Substance: PEMBROLIZUMAB
     Indication: CERVIX CANCER METASTATIC
     Dosage: UNK, EVERY 3 WEEKS
     Dates: start: 20200108, end: 2020

REACTIONS (1)
  - Tumour hyperprogression [Unknown]

NARRATIVE: CASE EVENT DATE: 20200210
